FAERS Safety Report 4318418-4 (Version None)
Quarter: 2004Q1

REPORT INFORMATION
  Report Type: 
  Country: None (occurrence: None)
  Receive Date: 20040315
  Receipt Date: 20040303
  Transmission Date: 20041129
  Serious: Yes (Hospitalization)
  Sender: FDA-Public Use
  Company Number: 2003AP00999

PATIENT
  Age: 15 Year
  Sex: Female
  Weight: 50 kg

DRUGS (5)
  1. PULMICORT [Suspect]
     Indication: ASTHMA
     Dosage: 400 UG DAILY IH
     Route: 025
     Dates: start: 20021021
  2. CELESTAMINE TAB [Suspect]
     Indication: ASTHMA
     Dosage: 2 DF DAILY PO
     Route: 048
     Dates: start: 20020904, end: 20021226
  3. BRONCHOLIN [Concomitant]
  4. UNIPHYL [Concomitant]
  5. DIPYRIDAMOLE [Concomitant]

REACTIONS (13)
  - ALLERGIC GRANULOMATOUS ANGIITIS [None]
  - BLOOD IMMUNOGLOBULIN E INCREASED [None]
  - DEMYELINATION [None]
  - DYSAESTHESIA [None]
  - EOSINOPHIL COUNT INCREASED [None]
  - GAIT DISTURBANCE [None]
  - HYPOAESTHESIA [None]
  - HYPOREFLEXIA [None]
  - NERVE CONDUCTION STUDIES ABNORMAL [None]
  - NEUROPATHY PERIPHERAL [None]
  - PAIN IN EXTREMITY [None]
  - PERONEAL NERVE PALSY [None]
  - SINUS TACHYCARDIA [None]
